FAERS Safety Report 8494119 (Version 4)
Quarter: 2013Q1

REPORT INFORMATION
  Report Type: Spontaneous
  Country: DE (occurrence: None)
  Receive Date: 20120320
  Receipt Date: 20130213
  Transmission Date: 20140127
  Serious: Yes (Death, Hospitalization)
  Sender: FDA-Public Use
  Company Number: 2012031594

PATIENT
  Age: 75 Year
  Sex: Male

DRUGS (5)
  1. PRIVIGEN [Suspect]
     Indication: CHRONIC LYMPHOCYTIC LEUKAEMIA
     Dosage: 20 G QD, 35 - 280 ML/H INTRAVENOUS (NOT OTHERWISE SPECIFIED)
     Route: 042
     Dates: start: 20120302, end: 20120302
  2. PANTOPRAZOLE(PANTOPRAZOLE) [Concomitant]
  3. BISOPROLOLOL(BISOPROLOL) [Concomitant]
  4. GABAPENTIN(GABAPENTIN) [Concomitant]
  5. TAMSULOSIN(TAMSULOSIN) [Concomitant]

REACTIONS (2)
  - Sepsis [None]
  - General physical health deterioration [None]
